FAERS Safety Report 19963678 (Version 1)
Quarter: 2021Q4

REPORT INFORMATION
  Report Type: Spontaneous
  Country: US (occurrence: US)
  Receive Date: 20211018
  Receipt Date: 20211018
  Transmission Date: 20220303
  Serious: Yes (Hospitalization)
  Sender: FDA-Public Use
  Company Number: None

PATIENT
  Age: 54 Year
  Sex: Male
  Weight: 99 kg

DRUGS (7)
  1. AMOXICILLIN\CLAVULANIC ACID [Suspect]
     Active Substance: AMOXICILLIN\CLAVULANIC ACID
     Indication: Infection
     Route: 048
     Dates: start: 20211012, end: 20211013
  2. Bactrim DS 1 tab BID [Concomitant]
     Dates: start: 20211013, end: 20211014
  3. Pyridostigmine 60mg PO QID [Concomitant]
     Dates: start: 20211014
  4. Azathioprine 100mg PO BID [Concomitant]
     Dates: start: 20211014
  5. IVIG (Immune Globulin) 40gms IV QD [Concomitant]
     Dates: start: 20211014, end: 20211017
  6. Famotidine 20mg IV x 1 [Concomitant]
     Dates: start: 20211014, end: 20211014
  7. Diphenydramine 25mg QD and PRN [Concomitant]
     Dates: start: 20211014, end: 20211017

REACTIONS (4)
  - General physical health deterioration [None]
  - Myasthenia gravis [None]
  - Dysphagia [None]
  - Speech disorder [None]

NARRATIVE: CASE EVENT DATE: 20211014
